FAERS Safety Report 5577105-5 (Version None)
Quarter: 2007Q4

REPORT INFORMATION
  Report Type: 
  Country: None (occurrence: None)
  Receive Date: 20071228
  Receipt Date: 20071218
  Transmission Date: 20080405
  Serious: Yes (Other)
  Sender: FDA-Public Use
  Company Number: JP-PFIZER INC-2007104699

PATIENT
  Age: 74 Year
  Sex: Female

DRUGS (3)
  1. MEDROL [Suspect]
     Indication: PROPHYLAXIS
     Route: 048
  2. FLUORESCITE [Concomitant]
     Route: 042
  3. ALL OTHER THERAPEUTIC PRODUCTS [Concomitant]
     Indication: DIABETES MELLITUS
     Route: 048

REACTIONS (1)
  - HYPERGLYCAEMIA [None]
